FAERS Safety Report 5780978-4 (Version None)
Quarter: 2008Q2

REPORT INFORMATION
  Report Type: 
  Country: None (occurrence: None)
  Receive Date: 20080618
  Receipt Date: 20080610
  Transmission Date: 20081010
  Serious: Yes (Hospitalization)
  Sender: FDA-Public Use
  Company Number: 163-21880-08060631

PATIENT
  Age: 57 Year
  Sex: Female
  Weight: 83 kg

DRUGS (9)
  1. REVLIMID [Suspect]
     Indication: CHRONIC LYMPHOCYTIC LEUKAEMIA
     Dosage: ORAL
  2. FLUDARABINE PHOSPHATE [Suspect]
     Indication: CHRONIC LYMPHOCYTIC LEUKAEMIA
     Dosage: 44.5 MG, DAY 1-5 Q 28 DAYS, INTRAVENOUS DRIP
     Route: 041
     Dates: start: 20080225, end: 20080530
  3. RITUXAN [Suspect]
     Indication: CHRONIC LYMPHOCYTIC LEUKAEMIA
     Dosage: 667.5 MG, Q 28 DAYS, INTRAVENOUS
     Route: 042
     Dates: start: 20080225, end: 20080526
  4. ACETAMINOPHEN [Concomitant]
  5. BENADRYL [Concomitant]
  6. HYDROCORTISONE [Concomitant]
  7. ACYCLOVIR [Concomitant]
  8. BACTRIM [Concomitant]
  9. ALLOPURINOL [Concomitant]

REACTIONS (7)
  - ANOREXIA [None]
  - ASTHENIA [None]
  - BLOOD CULTURE POSITIVE [None]
  - DYSPNOEA EXERTIONAL [None]
  - FATIGUE [None]
  - MALAISE [None]
  - TREMOR [None]
